FAERS Safety Report 4511622-1 (Version None)
Quarter: 2004Q4

REPORT INFORMATION
  Report Type: 
  Country: None (occurrence: None)
  Receive Date: 20041129
  Receipt Date: 20041019
  Transmission Date: 20050328
  Serious: Yes (Other)
  Sender: FDA-Public Use
  Company Number: US-BRISTOL-MYERS SQUIBB COMPANY-12736567

PATIENT
  Age: 23 Year
  Sex: Female

DRUGS (3)
  1. ABILIFY [Suspect]
     Indication: MAJOR DEPRESSION
     Route: 048
     Dates: start: 20040525, end: 20040530
  2. SEROQUEL [Concomitant]
  3. LEXAPRO [Concomitant]

REACTIONS (5)
  - DYSPHAGIA [None]
  - DYSTONIA [None]
  - MUSCULOSKELETAL STIFFNESS [None]
  - PAIN IN JAW [None]
  - TREMOR [None]
